FAERS Safety Report 18391475 (Version 1)
Quarter: 2020Q4

REPORT INFORMATION
  Report Type: Report from Study
  Country: US (occurrence: US)
  Receive Date: 20201015
  Receipt Date: 20201015
  Transmission Date: 20210114
  Serious: Yes (Other)
  Sender: FDA-Public Use
  Company Number: US-BAUSCH-BL-2020-029594

PATIENT
  Age: 71 Year
  Sex: Female

DRUGS (2)
  1. XIFAXAN [Suspect]
     Active Substance: RIFAXIMIN
     Indication: PRODUCT USE IN UNAPPROVED INDICATION
  2. XIFAXAN [Suspect]
     Active Substance: RIFAXIMIN
     Indication: CONFUSIONAL STATE
     Route: 048
     Dates: start: 2019

REACTIONS (2)
  - Product use in unapproved indication [Unknown]
  - Hip fracture [Unknown]

NARRATIVE: CASE EVENT DATE: 2019
